FAERS Safety Report 24195219 (Version 3)
Quarter: 2025Q3

REPORT INFORMATION
  Report Type: Spontaneous
  Country: EU (occurrence: EU)
  Receive Date: 20240809
  Receipt Date: 20250818
  Transmission Date: 20251021
  Serious: Yes (Other)
  Sender: ROCHE
  Company Number: EU-ROCHE-10000048122

PATIENT
  Age: 40 Year
  Sex: Female

DRUGS (1)
  1. ALECENSA [Suspect]
     Active Substance: ALECTINIB HYDROCHLORIDE
     Indication: Guillain-Barre syndrome
     Route: 065
     Dates: start: 202404

REACTIONS (4)
  - Hepatic enzyme increased [Unknown]
  - Off label use [Unknown]
  - Neuralgia [Recovered/Resolved]
  - Ill-defined disorder [Unknown]

NARRATIVE: CASE EVENT DATE: 20240401
